FAERS Safety Report 9280230 (Version 1)
Quarter: 2013Q2

REPORT INFORMATION
  Report Type: Report from Study
  Country: CA (occurrence: CA)
  Receive Date: 20130509
  Receipt Date: 20130509
  Transmission Date: 20140414
  Serious: Yes (Other)
  Sender: FDA-Public Use
  Company Number: PHHY2013CA044643

PATIENT
  Age: 84 Year
  Sex: Female

DRUGS (3)
  1. EXELON PATCH [Suspect]
     Indication: DEMENTIA ALZHEIMER^S TYPE
     Dosage: 4.6MG
  2. EXELON PATCH [Suspect]
     Dosage: 9.5 MG, DAILY (24HRS)
     Route: 062
     Dates: start: 20120411
  3. EXELON PATCH [Suspect]
     Dosage: 4.6 MG, DAILY (24HRS)
     Route: 062
     Dates: start: 20120911

REACTIONS (4)
  - Loss of consciousness [Unknown]
  - Headache [Unknown]
  - Fatigue [Unknown]
  - Nausea [Unknown]
